FAERS Safety Report 18726533 (Version 1)
Quarter: 2021Q1

REPORT INFORMATION
  Report Type: Report from Study
  Country: US (occurrence: US)
  Receive Date: 20210111
  Receipt Date: 20210111
  Transmission Date: 20210419
  Serious: Yes (Hospitalization, Other)
  Sender: FDA-Public Use
  Company Number: US-SHIRE-US202017178

PATIENT
  Age: 42 Year
  Sex: Female

DRUGS (17)
  1. TEDUGLUTIDE [Suspect]
     Active Substance: TEDUGLUTIDE
     Dosage: 2.99 MILLIGRAM, QD
     Route: 058
     Dates: start: 20190815
  2. TEDUGLUTIDE [Suspect]
     Active Substance: TEDUGLUTIDE
     Indication: SHORT-BOWEL SYNDROME
     Dosage: 0.291 UNK, QD
     Route: 058
     Dates: start: 20160416
  3. TEDUGLUTIDE [Suspect]
     Active Substance: TEDUGLUTIDE
     Dosage: 0.292 UNK, QD
     Route: 058
     Dates: start: 20160816
  4. TEDUGLUTIDE [Suspect]
     Active Substance: TEDUGLUTIDE
     Dosage: 0.292 UNK, QD
     Route: 058
     Dates: start: 20160816
  5. TEDUGLUTIDE [Suspect]
     Active Substance: TEDUGLUTIDE
     Dosage: 2.99 MILLIGRAM, QD
     Route: 058
     Dates: start: 20170710
  6. TEDUGLUTIDE [Suspect]
     Active Substance: TEDUGLUTIDE
     Dosage: 2.99 MILLIGRAM, QD
     Route: 058
     Dates: start: 20190815
  7. TEDUGLUTIDE [Suspect]
     Active Substance: TEDUGLUTIDE
     Dosage: 2.99 MILLIGRAM, QD
     Route: 058
     Dates: start: 20190815
  8. TEDUGLUTIDE [Suspect]
     Active Substance: TEDUGLUTIDE
     Indication: SHORT-BOWEL SYNDROME
     Dosage: 0.291 UNK, QD
     Route: 058
     Dates: start: 20160416
  9. TEDUGLUTIDE [Suspect]
     Active Substance: TEDUGLUTIDE
     Dosage: 2.99 MILLIGRAM, QD
     Route: 058
     Dates: start: 20170710
  10. TPN [AMINO ACIDS NOS;CARBOHYDRATES NOS;MINERALS NOS;VITAMINS NOS] [Concomitant]
     Active Substance: AMINO ACIDS\CARBOHYDRATES\MINERALS\VITAMINS
     Indication: PRODUCT USED FOR UNKNOWN INDICATION
  11. TEDUGLUTIDE [Suspect]
     Active Substance: TEDUGLUTIDE
     Indication: SHORT-BOWEL SYNDROME
     Dosage: 0.291 UNK, QD
     Route: 058
     Dates: start: 20160416
  12. TEDUGLUTIDE [Suspect]
     Active Substance: TEDUGLUTIDE
     Dosage: 0.292 UNK, QD
     Route: 058
     Dates: start: 20160816
  13. TEDUGLUTIDE [Suspect]
     Active Substance: TEDUGLUTIDE
     Dosage: 2.99 MILLIGRAM, QD
     Route: 058
     Dates: start: 20190815
  14. TEDUGLUTIDE [Suspect]
     Active Substance: TEDUGLUTIDE
     Indication: SHORT-BOWEL SYNDROME
     Dosage: 0.291 UNK, QD
     Route: 058
     Dates: start: 20160416
  15. TEDUGLUTIDE [Suspect]
     Active Substance: TEDUGLUTIDE
     Dosage: 0.292 UNK, QD
     Route: 058
     Dates: start: 20160816
  16. TEDUGLUTIDE [Suspect]
     Active Substance: TEDUGLUTIDE
     Dosage: 2.99 MILLIGRAM, QD
     Route: 058
     Dates: start: 20170710
  17. TEDUGLUTIDE [Suspect]
     Active Substance: TEDUGLUTIDE
     Dosage: 2.99 MILLIGRAM, QD
     Route: 058
     Dates: start: 20170710

REACTIONS (8)
  - Wound infection [Unknown]
  - Blood culture positive [Unknown]
  - Expired product administered [Unknown]
  - Fungal infection [Unknown]
  - Infection [Recovering/Resolving]
  - Sepsis [Unknown]
  - Vascular device infection [Unknown]
  - Pyrexia [Unknown]

NARRATIVE: CASE EVENT DATE: 20200622
